FAERS Safety Report 8953684 (Version 1)
Quarter: 2012Q4

REPORT INFORMATION
  Report Type: 
  Country: PT (occurrence: PT)
  Receive Date: 20121206
  Receipt Date: 20121206
  Transmission Date: 20130627
  Serious: Yes (Other)
  Sender: FDA-Public Use
  Company Number: PT-MYLANLABS-2012S1024739

PATIENT
  Age: 76 Year
  Sex: Female

DRUGS (5)
  1. ALENDRONATE [Suspect]
     Indication: OSTEOPOROSIS
     Dates: start: 20121117, end: 20121117
  2. VIGANTOL /00318501/ [Concomitant]
     Indication: PRODUCT USED FOR UNKNOWN INDICATION
  3. DAFLON [Concomitant]
     Indication: PRODUCT USED FOR UNKNOWN INDICATION
  4. FLUDEX [Concomitant]
     Indication: PRODUCT USED FOR UNKNOWN INDICATION
  5. SINVASTATINA [Concomitant]
     Indication: PRODUCT USED FOR UNKNOWN INDICATION

REACTIONS (6)
  - Syncope [Recovered/Resolved]
  - Asthenia [Recovered/Resolved]
  - Tremor [Recovered/Resolved]
  - Blindness [Recovered/Resolved]
  - Vomiting [Recovered/Resolved]
  - Disorientation [Recovered/Resolved]
